FAERS Safety Report 9553941 (Version 1)
Quarter: 2013Q3

REPORT INFORMATION
  Report Type: Spontaneous
  Country: US (occurrence: None)
  Receive Date: 20130913
  Receipt Date: 20130913
  Transmission Date: 20140515
  Serious: Yes (Other)
  Sender: FDA-Public Use
  Company Number: 1000046232

PATIENT
  Age: 62 Year
  Sex: Male
  Weight: 48.9 kg

DRUGS (12)
  1. DALIRESP [Suspect]
     Indication: CHRONIC OBSTRUCTIVE PULMONARY DISEASE
     Dosage: 500 MCG (500 MCG, 1 IN 1 D), ORAL
     Route: 048
     Dates: start: 2012
  2. CHANTIX [Suspect]
     Indication: SMOKING CESSATION THERAPY
     Dosage: 0.5 MG (0.5 MG, 1 IN 1 D), ORAL
     Route: 048
     Dates: start: 20130612, end: 20130613
  3. THEOPHYLLINE [Suspect]
     Indication: CHRONIC OBSTRUCTIVE PULMONARY DISEASE
     Dosage: 200 MG (100 MG, 2 IN 1 D), ORAL
     Route: 048
  4. SYMBICORT [Suspect]
     Indication: CHRONIC OBSTRUCTIVE PULMONARY DISEASE
     Dosage: TWICE DAILY
  5. SYMBICORT [Suspect]
     Indication: EMPHYSEMA
     Dosage: TWICE DAILY
  6. SPIRIVA [Suspect]
     Dosage: DAILY
  7. ALBUTEROL [Suspect]
     Indication: CHRONIC OBSTRUCTIVE PULMONARY DISEASE
  8. XANAX [Concomitant]
  9. MS CONTIN (MORPHINE SULFATE) (MORPHINE SULFATE) [Concomitant]
  10. DILTIAZEM (DILTIAZEM HYDROCHLORIDE) [Concomitant]
  11. PRILOSEC (OMEPRAZOLE) (OMEPRAZOLE) [Concomitant]
  12. NORTRIPTYLINE (NORTRIPTYLINE) (NORTRIPTYLINE) [Concomitant]

REACTIONS (5)
  - Tremor [None]
  - Dyspnoea [None]
  - Heart rate increased [None]
  - Nausea [None]
  - Drug interaction [None]
